FAERS Safety Report 14114714 (Version 2)
Quarter: 2017Q4

REPORT INFORMATION
  Report Type: Report from Study
  Country: ES (occurrence: ES)
  Receive Date: 20171023
  Receipt Date: 20171103
  Transmission Date: 20180321
  Serious: Yes (Hospitalization)
  Sender: FDA-Public Use
  Company Number: ES-MYLANLABS-2017M1067281

PATIENT
  Age: 82 Year
  Sex: Female

DRUGS (3)
  1. XARELTO [Interacting]
     Active Substance: RIVAROXABAN
     Indication: ATRIAL FIBRILLATION
     Dosage: 15 MG, CADA 24 HORAS
     Route: 048
     Dates: start: 20151222, end: 20160523
  2. MANIDON HTA 240 MG COMPRIMIDOS DE LIBERACI?N PROLONGADA [Suspect]
     Active Substance: VERAPAMIL HYDROCHLORIDE
     Indication: ATRIAL FIBRILLATION
     Dosage: 240 MG, CADA 24 HORAS
     Route: 048
     Dates: start: 20121114
  3. TRANGOREX [Interacting]
     Active Substance: AMIODARONE HYDROCHLORIDE
     Indication: ATRIAL FIBRILLATION
     Dosage: 200 MG, CADA 24 HORAS
     Route: 048
     Dates: start: 20151222

REACTIONS (1)
  - Iron deficiency anaemia [Recovered/Resolved]

NARRATIVE: CASE EVENT DATE: 20160523
